FAERS Safety Report 6359749-6 (Version None)
Quarter: 2009Q3

REPORT INFORMATION
  Report Type: 
  Country: None (occurrence: None)
  Receive Date: 20090917
  Receipt Date: 20090907
  Transmission Date: 20100115
  Serious: Yes (Hospitalization, Other)
  Sender: FDA-Public Use
  Company Number: TR-B.I. PHARMACEUTICALS,INC./RIDGEFIELD-2009-DE-05903GD

PATIENT
  Sex: Female

DRUGS (7)
  1. SERTRALINE HCL [Suspect]
     Indication: BIPOLAR II DISORDER
  2. SERTRALINE HCL [Suspect]
     Dosage: 200 MG
  3. PRAMIPEXOLE DIHYDROCHLORIDE [Suspect]
     Indication: BIPOLAR II DISORDER
     Dosage: 0.75 MG
  4. LITHIUM CARBONATE [Suspect]
     Indication: BIPOLAR II DISORDER
     Dosage: 600 MG
  5. LAMOTRIGINE [Suspect]
     Indication: BIPOLAR II DISORDER
     Dosage: 300 MG
  6. CLOMIPRAMINE [Suspect]
     Indication: BIPOLAR II DISORDER
     Dosage: 150 MG
  7. QUETIAPINE FUMARATE [Suspect]
     Indication: BIPOLAR II DISORDER
     Dosage: 100 MG

REACTIONS (6)
  - DRUG INEFFECTIVE [None]
  - ENERGY INCREASED [None]
  - MANIA [None]
  - NAUSEA [None]
  - SUICIDAL IDEATION [None]
  - VOMITING [None]
